FAERS Safety Report 10413172 (Version 1)
Quarter: 2014Q3

REPORT INFORMATION
  Report Type: Spontaneous
  Country: FR (occurrence: FR)
  Receive Date: 20140827
  Receipt Date: 20140827
  Transmission Date: 20150326
  Serious: Yes (Hospitalization, Other)
  Sender: FDA-Public Use
  Company Number: PHHY2014FR105730

PATIENT
  Age: 67 Year
  Sex: Male

DRUGS (6)
  1. RIVAROXABAN [Interacting]
     Active Substance: RIVAROXABAN
     Indication: ATRIAL FIBRILLATION
     Dosage: 15 MG, QD
  2. TELMISARTAN+HYDROCHLOROTHIAZIDE [Interacting]
     Active Substance: HYDROCHLOROTHIAZIDE\TELMISARTAN
  3. AMLODIPINE [Suspect]
     Active Substance: AMLODIPINE BESYLATE
  4. FLECAINIDE [Concomitant]
     Active Substance: FLECAINIDE
  5. BETAXOLOL [Concomitant]
     Active Substance: BETAXOLOL
  6. ROSUVASTATIN [Concomitant]
     Active Substance: ROSUVASTATIN

REACTIONS (9)
  - Blood pressure decreased [Recovered/Resolved]
  - Gastrointestinal ischaemia [Recovered/Resolved]
  - Abdominal pain [Unknown]
  - Multi-organ disorder [Unknown]
  - Splenic rupture [Unknown]
  - Cold sweat [Unknown]
  - Drug interaction [Unknown]
  - Dizziness [Unknown]
  - Shock haemorrhagic [Unknown]
